FAERS Safety Report 9201401 (Version 1)
Quarter: 2013Q2

REPORT INFORMATION
  Report Type: Spontaneous
  Country: US (occurrence: US)
  Receive Date: 20130401
  Receipt Date: 20130401
  Transmission Date: 20140414
  Serious: No
  Sender: FDA-Public Use
  Company Number: US-PFIZER INC-2013099969

PATIENT
  Age: 54 Year
  Sex: Female
  Weight: 81.63 kg

DRUGS (8)
  1. EFFEXOR [Suspect]
     Indication: DEPRESSION
     Dosage: 225 MG, 1X/DAY
     Route: 048
     Dates: start: 2010
  2. EFFEXOR [Suspect]
     Dosage: 150 MG, 1X/DAY
     Route: 048
  3. EFFEXOR [Suspect]
     Dosage: 75 MG, 1X/DAY
     Route: 048
  4. LISINOPRIL/HYDROCHLOROTHIAZIDE [Concomitant]
     Indication: HYPERTENSION
     Dosage: 10/12.5 MG, UNK
  5. VIMOVO [Concomitant]
     Indication: PAIN
     Dosage: UNK
  6. LORTAB [Concomitant]
     Indication: PAIN
     Dosage: 10 MG, AS NEEDED
  7. DOXEPIN [Concomitant]
     Dosage: UNK, 1X/DAY
  8. GABAPENTIN [Concomitant]
     Dosage: UNK

REACTIONS (3)
  - Vertigo [Unknown]
  - Dizziness [Unknown]
  - Weight increased [Unknown]
